FAERS Safety Report 9234076 (Version 2)
Quarter: 2013Q2

REPORT INFORMATION
  Report Type: Report from Study
  Country: CA (occurrence: CA)
  Receive Date: 20130416
  Receipt Date: 20130625
  Transmission Date: 20140414
  Serious: Yes (Hospitalization, Other)
  Sender: FDA-Public Use
  Company Number: CA-BAYER-2013-047346

PATIENT
  Age: 58 Year
  Sex: Female
  Weight: 26.3 kg

DRUGS (1)
  1. BETASERON [Suspect]
     Indication: MULTIPLE SCLEROSIS
     Dosage: UNK
     Dates: start: 20090501

REACTIONS (10)
  - Multiple sclerosis relapse [Recovered/Resolved]
  - Muscular weakness [None]
  - Blood pressure increased [None]
  - Chest discomfort [None]
  - Chest pain [None]
  - Hyperhidrosis [None]
  - Depressed level of consciousness [None]
  - Hypertension [None]
  - Weight increased [None]
  - Angina pectoris [None]
